FAERS Safety Report 6754372-3 (Version None)
Quarter: 2010Q2

REPORT INFORMATION
  Report Type: 
  Country: None (occurrence: None)
  Receive Date: 20100601
  Receipt Date: 20100519
  Transmission Date: 20101027
  Serious: Yes (Other)
  Sender: FDA-Public Use
  Company Number: MSTR-NO-1005S-0159

PATIENT
  Age: 60 Year
  Sex: Female

DRUGS (1)
  1. METASTRON [Suspect]
     Indication: METASTATIC PAIN
     Dosage: 106 MBQ, SINGLE DOSE, I.V.
     Route: 042
     Dates: start: 20100310, end: 20100310

REACTIONS (1)
  - HAEMOGLOBIN DECREASED [None]
